FAERS Safety Report 4411210-1 (Version None)
Quarter: 2004Q3

REPORT INFORMATION
  Report Type: 
  Country: None (occurrence: None)
  Receive Date: 20040727
  Receipt Date: 20040713
  Transmission Date: 20050211
  Serious: Yes (Hospitalization)
  Sender: FDA-Public Use
  Company Number: DK-JNJFOC-20040705057

PATIENT
  Age: 6 Year
  Sex: Male

DRUGS (2)
  1. ACETAMINOPHEN (ACETAMINOPHEN) UNSPECIFIED [Suspect]
     Indication: ANALGESIC THERAPY
     Dosage: GIVEN ON A DAILY BASIS FOR SEVERAL MONTHS
  2. ACETAMINOPHEN AND CODEINE (ACETAMINOPHEN/CODEINE) UNSPECIFIED [Suspect]

REACTIONS (10)
  - ALANINE AMINOTRANSFERASE INCREASED [None]
  - C-REACTIVE PROTEIN INCREASED [None]
  - COAGULATION FACTOR VII LEVEL DECREASED [None]
  - COAGULATION FACTOR X LEVEL DECREASED [None]
  - DIARRHOEA [None]
  - HAEMOGLOBIN DECREASED [None]
  - OEDEMA [None]
  - PROTHROMBIN LEVEL DECREASED [None]
  - RESPIRATORY DISTRESS [None]
  - TOXIC EPIDERMAL NECROLYSIS [None]
